FAERS Safety Report 5588331-3 (Version None)
Quarter: 2008Q1

REPORT INFORMATION
  Report Type: 
  Country: None (occurrence: None)
  Receive Date: 20080111
  Receipt Date: 20080108
  Transmission Date: 20080703
  Serious: Yes (Life-Threatening)
  Sender: FDA-Public Use
  Company Number: FR-JNJFOC-20080101201

PATIENT
  Age: 57 Year
  Sex: Male

DRUGS (2)
  1. OFLOCET [Suspect]
     Indication: CELLULITIS
     Route: 042
  2. ORBENINE [Concomitant]
     Indication: CELLULITIS
     Route: 042

REACTIONS (3)
  - COMA [None]
  - OVERDOSE [None]
  - RENAL FAILURE ACUTE [None]
